FAERS Safety Report 5276537-2 (Version None)
Quarter: 2007Q1

REPORT INFORMATION
  Report Type: 
  Country: None (occurrence: None)
  Receive Date: 20061213
  Receipt Date: 20050208
  Transmission Date: 20070707
  Serious: No
  Sender: FDA-Public Use
  Company Number: 2004UW25570

PATIENT
  Age: 73 Year
  Sex: Male

DRUGS (5)
  1. SEROQUEL [Suspect]
     Dosage: 100 MG ONCE PO
     Route: 048
     Dates: start: 20040319, end: 20040319
  2. LITHIUM CARBONATE [Concomitant]
  3. PAXIL [Concomitant]
  4. TYLENOL [Concomitant]
  5. VIOXX [Concomitant]

REACTIONS (3)
  - ASTHENIA [None]
  - DIZZINESS [None]
  - HEART RATE DECREASED [None]
